FAERS Safety Report 12979133 (Version 1)
Quarter: 2016Q4

REPORT INFORMATION
  Report Type: Spontaneous
  Country: GB (occurrence: GB)
  Receive Date: 20161128
  Receipt Date: 20161128
  Transmission Date: 20170207
  Serious: Yes (Other)
  Sender: FDA-Public Use
  Company Number: GB-GLAXOSMITHKLINE-GB2016171471

PATIENT
  Age: 44 Year
  Sex: Female
  Weight: 68 kg

DRUGS (18)
  1. CIPROFLOXACIN. [Concomitant]
     Active Substance: CIPROFLOXACIN
     Indication: PYELONEPHRITIS
     Dosage: 1 DF, BID
     Dates: start: 20160929, end: 20161006
  2. BUDESONIDE. [Concomitant]
     Active Substance: BUDESONIDE
     Dosage: 2 DF, BID
     Dates: start: 20160914, end: 20160915
  3. DIPROBASE [Concomitant]
     Active Substance: CHLOROCRESOL
     Dates: start: 20130313
  4. HYDROCORTISONE. [Concomitant]
     Active Substance: HYDROCORTISONE
     Dosage: APPLY THINLY.
     Dates: start: 20161109
  5. VENTOLIN [Concomitant]
     Active Substance: ALBUTEROL SULFATE
     Dosage: INHALE 2 DOSES.
     Route: 055
     Dates: start: 20150102
  6. DOUBLEBASE [Concomitant]
     Active Substance: ISOPROPYL MYRISTATE\PARAFFIN
     Dosage: AS DIRECTED
     Dates: start: 20130313
  7. IPRATROPIUM BROMIDE. [Concomitant]
     Active Substance: IPRATROPIUM BROMIDE
     Dosage: INHALE ONE TO TWO DOSES.
     Route: 055
     Dates: start: 20161017
  8. PARACETAMOL [Concomitant]
     Active Substance: ACETAMINOPHEN
     Dosage: 2 DF, UNK
     Dates: start: 20140918
  9. VOLUMATIC [Concomitant]
     Dosage: USE AS DIRECTED
     Dates: start: 20160810, end: 20160811
  10. INCRUSE ELLIPTA [Suspect]
     Active Substance: UMECLIDINIUM BROMIDE
     Indication: PRODUCT USED FOR UNKNOWN INDICATION
     Dosage: UNK
     Route: 065
     Dates: start: 20161109
  11. OMEPRAZOLE. [Concomitant]
     Active Substance: OMEPRAZOLE
     Dosage: 2 DF, BID
     Dates: start: 20140818
  12. FEXOFENADINE [Concomitant]
     Active Substance: FEXOFENADINE\FEXOFENADINE HYDROCHLORIDE
     Dosage: 1 DF, QD
     Dates: start: 20161109
  13. MOMETASONE [Concomitant]
     Active Substance: MOMETASONE
     Dosage: 2 DF, QD
     Dates: start: 20161031
  14. NAPROXEN. [Concomitant]
     Active Substance: NAPROXEN
     Dosage: 1 DF, UNK
     Dates: start: 20161017, end: 20161031
  15. BETAHISTINE [Concomitant]
     Active Substance: BETAHISTINE
     Dosage: ONE OR TWO TO BE TAKEN THREE TIMES A DAY
     Dates: start: 20130604
  16. NASEPTIN [Concomitant]
     Active Substance: CHLORHEXIDINE HYDROCHLORIDE\NEOMYCIN SULFATE
     Dosage: APPLY 3-4 TIMES DAILY TO LEFT NOSTRIL
     Route: 061
     Dates: start: 20161031, end: 20161101
  17. RANITIDINE. [Concomitant]
     Active Substance: RANITIDINE
     Dosage: 1 DF, BID
     Dates: start: 20151223
  18. TRAMADOL. [Concomitant]
     Active Substance: TRAMADOL
     Dosage: ONE TO TWO 4 TIMES A DAY AS REQUIRED
     Dates: start: 20160408

REACTIONS (1)
  - Urticaria [Not Recovered/Not Resolved]

NARRATIVE: CASE EVENT DATE: 20161109
